FAERS Safety Report 6290734-9 (Version None)
Quarter: 2009Q3

REPORT INFORMATION
  Report Type: 
  Country: None (occurrence: None)
  Receive Date: 20090730
  Receipt Date: 20090716
  Transmission Date: 20100115
  Serious: Yes (Hospitalization, Disabling, Other)
  Sender: FDA-Public Use
  Company Number: PHHY2009JP21679

PATIENT
  Sex: Male
  Weight: 88 kg

DRUGS (7)
  1. RITALIN [Suspect]
     Indication: DEPRESSION
     Dosage: UNK
     Route: 048
     Dates: end: 20090501
  2. ANAFRANIL [Suspect]
     Indication: DEPRESSIVE SYMPTOM
     Route: 048
  3. VEGETAMIN A [Suspect]
     Route: 048
  4. PEMOLINE [Suspect]
     Indication: DEPRESSIVE SYMPTOM
     Route: 048
  5. DEPAS [Suspect]
     Indication: DEPRESSIVE SYMPTOM
     Route: 048
  6. GASLON [Concomitant]
     Route: 048
  7. CEREKINON [Concomitant]

REACTIONS (26)
  - ALCOHOLIC LIVER DISEASE [None]
  - ALTERED STATE OF CONSCIOUSNESS [None]
  - AMMONIA INCREASED [None]
  - AUTONOMIC NERVOUS SYSTEM IMBALANCE [None]
  - BLOOD ALDOSTERONE INCREASED [None]
  - BLOOD CREATINE PHOSPHOKINASE INCREASED [None]
  - BLOOD CREATININE DECREASED [None]
  - BLOOD GLUCOSE INCREASED [None]
  - BLOOD UREA INCREASED [None]
  - CONCOMITANT DISEASE PROGRESSION [None]
  - DEHYDRATION [None]
  - DRUG TOXICITY [None]
  - FALL [None]
  - HYPERHIDROSIS [None]
  - HYPERNATRAEMIA [None]
  - HYPERTENSION [None]
  - HYPOKALAEMIA [None]
  - LYMPHOCYTE COUNT DECREASED [None]
  - METABOLIC ALKALOSIS [None]
  - NEUTROPHIL COUNT INCREASED [None]
  - PLATELET COUNT DECREASED [None]
  - PYREXIA [None]
  - RED BLOOD CELL COUNT DECREASED [None]
  - RENIN INCREASED [None]
  - TACHYCARDIA [None]
  - WHITE BLOOD CELL COUNT INCREASED [None]
